FAERS Safety Report 8011918-5 (Version None)
Quarter: 2011Q4

REPORT INFORMATION
  Report Type: 
  Country: None (occurrence: None)
  Receive Date: 20111228
  Receipt Date: 20111221
  Transmission Date: 20120403
  Serious: Yes (Hospitalization)
  Sender: FDA-Public Use
  Company Number: US-GLAXOSMITHKLINE-A0911675A

PATIENT
  Age: 71 Year
  Sex: Male
  Weight: 113.6 kg

DRUGS (11)
  1. AMARYL [Concomitant]
  2. VYTORIN [Concomitant]
  3. PROTONIX [Concomitant]
  4. GLUCOTROL [Concomitant]
  5. AVANDAMET [Suspect]
     Indication: DIABETES MELLITUS
     Route: 048
     Dates: start: 20030801, end: 20060201
  6. VIOXX [Concomitant]
  7. GLUCOPHAGE [Concomitant]
  8. TOPROL-XL [Concomitant]
  9. AVANDIA [Suspect]
     Indication: DIABETES MELLITUS
     Dosage: 8MG PER DAY
     Route: 048
     Dates: start: 19990701, end: 20071001
  10. ZOCOR [Concomitant]
  11. LISINOPRIL [Concomitant]

REACTIONS (3)
  - MYOCARDIAL ISCHAEMIA [None]
  - CORONARY ARTERY DISEASE [None]
  - ACUTE MYOCARDIAL INFARCTION [None]
